FAERS Safety Report 7715144-6 (Version None)
Quarter: 2011Q3

REPORT INFORMATION
  Report Type: 
  Country: None (occurrence: None)
  Receive Date: 20110829
  Receipt Date: 20110818
  Transmission Date: 20111222
  Serious: Yes (Hospitalization)
  Sender: FDA-Public Use
  Company Number: PHHY2011FR74338

PATIENT
  Sex: Male

DRUGS (5)
  1. SIMAVASTATIN [Concomitant]
     Dosage: 20 MG, UNK
  2. TEGRETOL [Suspect]
     Dosage: 400 MG, DAILY
     Route: 048
     Dates: start: 20110401
  3. PLAVIX [Suspect]
     Dosage: 75 MG, DAILY
     Dates: start: 20110301
  4. ALFUZOSIN HCL [Concomitant]
     Dosage: 2 DF, UNK
  5. PERINDOPRIL [Concomitant]
     Dosage: 2 MG, UNK

REACTIONS (6)
  - HEAD INJURY [None]
  - DISTURBANCE IN ATTENTION [None]
  - HEMIPLEGIA [None]
  - PNEUMONIA ASPIRATION [None]
  - FALL [None]
  - SUBDURAL HAEMATOMA [None]
